FAERS Safety Report 8000979-5 (Version None)
Quarter: 2011Q4

REPORT INFORMATION
  Report Type: 
  Country: None (occurrence: None)
  Receive Date: 20111222
  Receipt Date: 20101130
  Transmission Date: 20120403
  Serious: No
  Sender: FDA-Public Use
  Company Number: US-GLAXOSMITHKLINE-A0896982A

PATIENT
  Sex: Female

DRUGS (8)
  1. COUMADIN [Concomitant]
  2. DIOVAN HCT [Concomitant]
  3. CALCIUM WITH VITAMIN D [Concomitant]
  4. FLONASE [Suspect]
     Indication: MULTIPLE ALLERGIES
     Route: 045
  5. VITAMIN B COMPLEX CAP [Concomitant]
  6. PREVACID [Concomitant]
  7. FLOVENT [Concomitant]
  8. PROVENTIL [Concomitant]

REACTIONS (2)
  - SELF-MEDICATION [None]
  - COUGH [None]
